FAERS Safety Report 9922466 (Version 1)
Quarter: 2014Q1

REPORT INFORMATION
  Report Type: Spontaneous
  Country: US (occurrence: US)
  Receive Date: 20140225
  Receipt Date: 20140225
  Transmission Date: 20141002
  Serious: No
  Sender: FDA-Public Use
  Company Number: US-MYLANLABS-2013S1006815

PATIENT
  Age: 38 Year
  Sex: Male

DRUGS (1)
  1. ATENOLOL TABLETS, USP [Suspect]
     Route: 048

REACTIONS (2)
  - Chest pain [Not Recovered/Not Resolved]
  - Blood pressure increased [Not Recovered/Not Resolved]
